FAERS Safety Report 25651182 (Version 1)
Quarter: 2025Q3

REPORT INFORMATION
  Report Type: Spontaneous
  Country: CN (occurrence: CN)
  Receive Date: 20250806
  Receipt Date: 20250806
  Transmission Date: 20251020
  Serious: Yes (Hospitalization)
  Sender: PFIZER
  Company Number: CN-PFIZER INC-PV202500093516

PATIENT
  Age: 11 Year
  Sex: Male
  Weight: 36 kg

DRUGS (1)
  1. METHOTREXATE SODIUM [Suspect]
     Active Substance: METHOTREXATE SODIUM
     Indication: Acute lymphocytic leukaemia
     Dosage: 5.5 G, 1X/DAY
     Route: 041
     Dates: start: 20250722, end: 20250722

REACTIONS (2)
  - Acute kidney injury [Recovering/Resolving]
  - Drug clearance decreased [Recovering/Resolving]

NARRATIVE: CASE EVENT DATE: 20250701
